FAERS Safety Report 4999750-8 (Version None)
Quarter: 2006Q2

REPORT INFORMATION
  Report Type: 
  Country: None (occurrence: None)
  Receive Date: 20060511
  Receipt Date: 20060503
  Transmission Date: 20061013
  Serious: Yes (Hospitalization)
  Sender: FDA-Public Use
  Company Number: FR-GLAXOSMITHKLINE-B0422368A

PATIENT
  Age: 92 Year
  Sex: Female
  Weight: 78 kg

DRUGS (6)
  1. PAROXETINE HYDROCHLORIDE [Suspect]
     Dosage: 20MG PER DAY
     Route: 048
     Dates: start: 20060119, end: 20060124
  2. COAPROVEL [Suspect]
     Indication: ESSENTIAL HYPERTENSION
     Dosage: 1UNIT PER DAY
     Route: 048
  3. CONTRAMAL [Concomitant]
     Indication: OSTEOPOROSIS
     Route: 048
     Dates: end: 20060125
  4. PHYSIOTENS [Concomitant]
     Indication: ESSENTIAL HYPERTENSION
     Dosage: 1UNIT PER DAY
     Route: 048
  5. DITROPAN [Concomitant]
     Indication: URINARY INCONTINENCE
     Route: 048
  6. AMLOR [Concomitant]
     Indication: ESSENTIAL HYPERTENSION
     Dosage: 10MG PER DAY
     Route: 048

REACTIONS (4)
  - CONFUSIONAL STATE [None]
  - HYPOCHLORAEMIA [None]
  - HYPOKALAEMIA [None]
  - HYPONATRAEMIA [None]
